FAERS Safety Report 7451488-3 (Version None)
Quarter: 2011Q2

REPORT INFORMATION
  Report Type: 
  Country: None (occurrence: None)
  Receive Date: 20110502
  Receipt Date: 20110426
  Transmission Date: 20111010
  Serious: Yes (Hospitalization)
  Sender: FDA-Public Use
  Company Number: FR-SANOFI-AVENTIS-2011SA025987

PATIENT
  Age: 48 Year
  Sex: Male

DRUGS (12)
  1. REPAGLINIDE [Concomitant]
     Dates: start: 20101101
  2. STILNOX [Concomitant]
     Dates: start: 19980101
  3. DEROXAT [Concomitant]
     Dates: start: 19980101
  4. ESOMEPRAZOLE [Concomitant]
     Dates: start: 19980101
  5. TAHOR [Concomitant]
     Dates: start: 19980101
  6. KARDEGIC [Concomitant]
     Dates: start: 19980101
  7. LASIX [Suspect]
     Route: 048
     Dates: start: 20100301
  8. BURINEX [Concomitant]
     Dates: start: 20100901
  9. AERIUS [Concomitant]
     Dates: start: 20100901, end: 20110308
  10. TRIATEC [Concomitant]
     Dates: start: 19980101
  11. DEPAKENE [Concomitant]
     Route: 048
     Dates: start: 20101101
  12. CARDENSIEL [Concomitant]
     Dates: start: 19980101

REACTIONS (3)
  - NECROSIS [None]
  - VASCULITIS [None]
  - PURPURA [None]
